FAERS Safety Report 17985378 (Version 1)
Quarter: 2020Q3

REPORT INFORMATION
  Report Type: Spontaneous
  Country: US (occurrence: US)
  Receive Date: 20200706
  Receipt Date: 20200706
  Transmission Date: 20201103
  Serious: No
  Sender: FDA-Public Use
  Company Number: US-BAUSCH-BL-2020-019149

PATIENT
  Age: 74 Year
  Sex: Female

DRUGS (1)
  1. LORAZEPAM. [Suspect]
     Active Substance: LORAZEPAM
     Indication: PANIC ATTACK
     Route: 065

REACTIONS (1)
  - Drug ineffective [Unknown]
